FAERS Safety Report 4345151-5 (Version None)
Quarter: 2004Q2

REPORT INFORMATION
  Report Type: 
  Country: None (occurrence: None)
  Receive Date: 20040421
  Receipt Date: 20040421
  Transmission Date: 20050107
  Serious: No
  Sender: FDA-Public Use
  Company Number: None

PATIENT
  Age: 44 Year
  Sex: Male
  Weight: 84.37 kg

DRUGS (2)
  1. PERPHENAZINE [Suspect]
     Indication: SCHIZOPHRENIA, PARANOID TYPE
     Dosage: 44MG DAILY ORAL
     Route: 048
     Dates: start: 20040126, end: 20040206
  2. BENZTROPINE MESYLATE [Concomitant]

REACTIONS (1)
  - PLATELET COUNT DECREASED [None]
